FAERS Safety Report 9630677 (Version 1)
Quarter: 2013Q4

REPORT INFORMATION
  Report Type: Spontaneous
  Country: US (occurrence: None)
  Receive Date: 20131016
  Receipt Date: 20131016
  Transmission Date: 20140711
  Serious: Yes (Other)
  Sender: FDA-Public Use
  Company Number: JK1122

PATIENT
  Sex: Female

DRUGS (2)
  1. RICOLA SUGAR FREE SWISS HERB DROPS [Suspect]
     Indication: COUGH
     Dosage: 4 OR MORE DROPS PER DAY
  2. RICOLA COUGH DROPS [Suspect]
     Indication: OROPHARYNGEAL PAIN
     Dosage: 2 DROPS EACH NIGHT

REACTIONS (1)
  - Tooth disorder [None]
